FAERS Safety Report 9695627 (Version 1)
Quarter: 2013Q4

REPORT INFORMATION
  Report Type: Spontaneous
  Country: AU (occurrence: AU)
  Receive Date: 20131119
  Receipt Date: 20131119
  Transmission Date: 20140711
  Serious: Yes (Hospitalization, Other)
  Sender: FDA-Public Use
  Company Number: PHHY2013AU130861

PATIENT
  Age: 82 Year
  Sex: Male

DRUGS (1)
  1. METFORMIN [Suspect]
     Dosage: 3000 MG, DAY

REACTIONS (6)
  - Lactic acidosis [Unknown]
  - Abdominal pain upper [Unknown]
  - Decreased appetite [Unknown]
  - Diarrhoea [Unknown]
  - Blood creatinine increased [Unknown]
  - Drug level increased [Unknown]
